FAERS Safety Report 8563878 (Version 2)
Quarter: 2012Q4

REPORT INFORMATION
  Report Type: 
  Country: US (occurrence: US)
  Receive Date: 20120515
  Receipt Date: 20121219
  Transmission Date: 20130627
  Serious: Yes (Other)
  Sender: FDA-Public Use
  Company Number: US-ELI_LILLY_AND_COMPANY-US201205002567

PATIENT
  Sex: Female

DRUGS (2)
  1. FORTEO [Suspect]
     Indication: OSTEOPOROSIS
     Dosage: UNK, unknown
     Route: 065
  2. FORTEO [Suspect]
     Dosage: 20 ug, qd

REACTIONS (4)
  - Blindness [Unknown]
  - Pain [Unknown]
  - Drug ineffective [Unknown]
  - Disability [Not Recovered/Not Resolved]
